FAERS Safety Report 23179971 (Version 3)
Quarter: 2024Q1

REPORT INFORMATION
  Report Type: Report from Study
  Country: CO (occurrence: CO)
  Receive Date: 20231114
  Receipt Date: 20240203
  Transmission Date: 20240410
  Serious: Yes (Other)
  Sender: FDA-Public Use
  Company Number: CO-BAYER-2023A161650

PATIENT
  Sex: Male

DRUGS (3)
  1. EYLEA [Suspect]
     Active Substance: AFLIBERCEPT
     Indication: Age-related macular degeneration
     Dosage: 2 MG,ONCE IGHT EYE (2 MG INTRAVITREALLY,MONTHLY FOR 3 MONTHS, AND THEN EVERY 2 MONTHS ),SOL FOR INJ,
     Route: 031
     Dates: start: 20191001, end: 20191001
  2. EYLEA [Suspect]
     Active Substance: AFLIBERCEPT
     Dosage: 2 MG,ONCE RIGHT EYE (2 MG INTRAVITREAL MONTHLY FOR 3 MONTHS, AND THEN EVERY2 MONTHS), SOL FOR INJ,40
     Route: 031
     Dates: start: 20231101, end: 20231101
  3. EYLEA [Suspect]
     Active Substance: AFLIBERCEPT
     Dosage: 2 MG RIGHT EYE (2 MG INTRAVITREAL MONTHLY FOR 3 MONTHS,AND THEN EVERY 2 MONTHS),SOL FOR INJ,40 MG/ML
     Route: 031
     Dates: start: 20240115

REACTIONS (4)
  - Blindness unilateral [Not Recovered/Not Resolved]
  - Choroidal effusion [Not Recovered/Not Resolved]
  - Inappropriate schedule of product administration [Not Recovered/Not Resolved]
  - Vision blurred [Not Recovered/Not Resolved]

NARRATIVE: CASE EVENT DATE: 20231001
